FAERS Safety Report 5556340-6 (Version None)
Quarter: 2007Q4

REPORT INFORMATION
  Report Type: 
  Country: None (occurrence: None)
  Receive Date: 20071213
  Receipt Date: 20070912
  Transmission Date: 20080405
  Serious: No
  Sender: FDA-Public Use
  Company Number: US-AMGEN-KDL240117

PATIENT
  Sex: Female
  Weight: 72.2 kg

DRUGS (3)
  1. ENBREL [Suspect]
     Indication: RHEUMATOID ARTHRITIS
     Route: 058
     Dates: start: 20070630
  2. METHOTREXATE [Concomitant]
     Route: 048
     Dates: start: 20050101
  3. PLAQUENIL [Concomitant]
     Dates: start: 20061201

REACTIONS (4)
  - DRUG INEFFECTIVE [None]
  - INJECTION SITE BRUISING [None]
  - INJECTION SITE ERYTHEMA [None]
  - INJECTION SITE RASH [None]
